FAERS Safety Report 16043067 (Version 2)
Quarter: 2019Q2

REPORT INFORMATION
  Report Type: Spontaneous
  Country: CA (occurrence: CA)
  Receive Date: 20190306
  Receipt Date: 20190624
  Transmission Date: 20190711
  Serious: Yes (Other)
  Sender: FDA-Public Use
  Company Number: CA-GLAXOSMITHKLINE-CA2019GSK038095

PATIENT
  Age: 36 Year
  Sex: Female

DRUGS (3)
  1. BENLYSTA [Suspect]
     Active Substance: BELIMUMAB
     Indication: SYSTEMIC LUPUS ERYTHEMATOSUS
     Dosage: 100 MG, UNK
  2. BENLYSTA [Suspect]
     Active Substance: BELIMUMAB
     Dosage: 100 MG, UNK
  3. BENLYSTA [Suspect]
     Active Substance: BELIMUMAB
     Dosage: 100 MG, UNK

REACTIONS (3)
  - Exposure during pregnancy [Unknown]
  - Arthralgia [Unknown]
  - Abortion spontaneous [Unknown]

NARRATIVE: CASE EVENT DATE: 20190207
